FAERS Safety Report 4263656-2 (Version None)
Quarter: 2004Q1

REPORT INFORMATION
  Report Type: 
  Country: None (occurrence: None)
  Receive Date: 20040102
  Receipt Date: 20031222
  Transmission Date: 20041129
  Serious: Yes (Hospitalization)
  Sender: FDA-Public Use
  Company Number: 03P-163-0245805-00

PATIENT
  Age: 38 Year
  Sex: Male

DRUGS (6)
  1. KALETRA [Suspect]
     Indication: HIV INFECTION
     Dosage: SEE IMAGE
     Route: 048
     Dates: start: 20031021, end: 20030101
  2. KALETRA [Suspect]
     Indication: HIV INFECTION
     Dosage: SEE IMAGE
     Route: 048
     Dates: start: 20030724, end: 20030804
  3. EFAVIRENZ [Suspect]
     Indication: HIV INFECTION
     Dosage: 600 MG, AT BEDTIME
     Dates: start: 20031021, end: 20030101
  4. EFAVIRENZ [Suspect]
     Indication: HIV INFECTION
     Dosage: 600 MG, AT BEDTIME
     Dates: start: 20030724, end: 20030804
  5. TRIMETHOPRIM/SULFAMETHIOXAZOLE (BACTRIM) [Concomitant]
  6. AZITHROMYCIN [Concomitant]

REACTIONS (11)
  - ANAEMIA [None]
  - BACK PAIN [None]
  - CANDIDIASIS [None]
  - HEPATOSPLENOMEGALY [None]
  - HYPERBILIRUBINAEMIA [None]
  - JAUNDICE CHOLESTATIC [None]
  - LIVER DISORDER [None]
  - MYCOBACTERIUM AVIUM COMPLEX INFECTION [None]
  - PLATELET DISORDER [None]
  - RASH MACULO-PAPULAR [None]
  - RENAL FAILURE [None]
